FAERS Safety Report 10465385 (Version 3)
Quarter: 2015Q1

REPORT INFORMATION
  Report Type: Spontaneous
  Country: BR (occurrence: BR)
  Receive Date: 20140919
  Receipt Date: 20150127
  Transmission Date: 20150720
  Serious: Yes (Hospitalization, Other)
  Sender: FDA-Public Use
  Company Number: BR-PFIZER INC-2014258143

PATIENT
  Age: 48 Year
  Sex: Female

DRUGS (1)
  1. FRONTAL XR [Suspect]
     Active Substance: ALPRAZOLAM
     Indication: ANXIETY DISORDER
     Dosage: 1 TABLET OF 0.5 MG, AT NIGHT
     Dates: start: 201407, end: 20140916

REACTIONS (1)
  - Hypersensitivity [Recovering/Resolving]

NARRATIVE: CASE EVENT DATE: 20140916
